FAERS Safety Report 5241898-7 (Version None)
Quarter: 2007Q1

REPORT INFORMATION
  Report Type: 
  Country: None (occurrence: None)
  Receive Date: 20070220
  Receipt Date: 20070212
  Transmission Date: 20070707
  Serious: Yes (Life-Threatening)
  Sender: FDA-Public Use
  Company Number: PFIZER INC-2007011961

PATIENT
  Sex: Male
  Weight: 95 kg

DRUGS (1)
  1. FRAGMIN [Suspect]
     Indication: THROMBOSIS PROPHYLAXIS
     Dosage: FREQ:DAILY
     Route: 058
     Dates: start: 20061217, end: 20061227

REACTIONS (2)
  - CARDIO-RESPIRATORY ARREST [None]
  - HEPARIN-INDUCED THROMBOCYTOPENIA [None]
